FAERS Safety Report 5095892-X (Version None)
Quarter: 2006Q3

REPORT INFORMATION
  Report Type: 
  Country: None (occurrence: None)
  Receive Date: 20060905
  Receipt Date: 20060829
  Transmission Date: 20061208
  Serious: Yes (Death)
  Sender: FDA-Public Use
  Company Number: DE-BAYER-200613798GDS

PATIENT
  Age: 46 Year
  Sex: Female
  Weight: 50 kg

DRUGS (15)
  1. APROTININ [Suspect]
     Indication: AORTIC VALVE REPLACEMENT
     Route: 042
  2. APROTININ [Suspect]
     Route: 042
  3. APROTININ [Suspect]
     Route: 042
  4. PROTAMINE SULFATE [Suspect]
     Indication: HEPARIN NEUTRALISATION THERAPY
  5. METRONIDAZOLE [Concomitant]
     Indication: ENDOCARDITIS
     Route: 065
  6. IMIPENEM [Concomitant]
     Indication: ENDOCARDITIS
     Route: 065
  7. GENTAMICIN [Concomitant]
     Indication: ENDOCARDITIS
     Route: 065
  8. LINEZOLID [Concomitant]
     Indication: ENDOCARDITIS
     Route: 065
  9. HEPARIN [Concomitant]
     Indication: ANTICOAGULANT THERAPY
     Route: 065
  10. MIDAZOLAM [Concomitant]
     Indication: ANAESTHESIA
     Route: 065
  11. SUFENTANIL CITRATE [Concomitant]
     Indication: ANAESTHESIA
     Route: 065
  12. ETOMIDATE [Concomitant]
     Indication: ANAESTHESIA
     Route: 065
  13. ROCURONIUM [Concomitant]
     Indication: ANAESTHESIA
     Route: 065
  14. SUFENTANIL CITRATE [Concomitant]
     Route: 065
  15. ISOFLURANE [Concomitant]
     Indication: ANAESTHESIA
     Route: 065

REACTIONS (14)
  - ATRIAL THROMBOSIS [None]
  - BLOOD PRESSURE DECREASED [None]
  - CENTRAL VENOUS PRESSURE INCREASED [None]
  - DIFFICULT TO WEAN FROM VENTILATOR [None]
  - DISSEMINATED INTRAVASCULAR COAGULATION [None]
  - ENDOCARDITIS [None]
  - INTRACARDIAC THROMBUS [None]
  - MESENTERIC ARTERY THROMBOSIS [None]
  - PATHOGEN RESISTANCE [None]
  - PROCEDURAL COMPLICATION [None]
  - PULMONARY HYPERTENSION [None]
  - SHUNT OCCLUSION [None]
  - SPLENIC INFARCTION [None]
  - VENA CAVA THROMBOSIS [None]
